FAERS Safety Report 25687888 (Version 4)
Quarter: 2025Q4

REPORT INFORMATION
  Report Type: Report from Study
  Country: EU (occurrence: EU)
  Receive Date: 20250817
  Receipt Date: 20251019
  Transmission Date: 20260117
  Serious: Yes (Hospitalization)
  Sender: ABBVIE
  Company Number: EU-ABBVIE-6009432

PATIENT
  Age: 80 Year
  Sex: Female

DRUGS (6)
  1. FOSCARBIDOPA\FOSLEVODOPA [Suspect]
     Active Substance: FOSCARBIDOPA\FOSLEVODOPA
     Indication: Parkinson^s disease
     Dosage: (SD: 0.30 ML), CRN: 0.18 ML/H, CR: 0.27 ML/H, CRH: 0.29 ML/H, ED: 0.10
     Route: 058
     Dates: start: 20241112
  2. FOSCARBIDOPA\FOSLEVODOPA [Suspect]
     Active Substance: FOSCARBIDOPA\FOSLEVODOPA
     Dosage: SD: 0.30 ML, KRN: 0.15 ML/H, KR: 0.15 ML/H, KRH: 0.17 ML/H, ED: 0.10 ML?LAST ADMIN DATE-2024
     Route: 058
     Dates: start: 20241018
  3. FOSCARBIDOPA\FOSLEVODOPA [Suspect]
     Active Substance: FOSCARBIDOPA\FOSLEVODOPA
     Dosage: (SD: 0.30 ML), CRN: 0.18 ML/H, CR: 0.27 ML/H, CRH: 0.29 ML/H, ED: 0.10
     Route: 058
     Dates: start: 2024, end: 2024
  4. FOSCARBIDOPA\FOSLEVODOPA [Suspect]
     Active Substance: FOSCARBIDOPA\FOSLEVODOPA
     Dosage: (SD: 0.30 ML), CRN: 0.15 ML/H, CR: 0.20 ML/H, CRH: 0.24 ML/H, ED: 0.10
     Route: 058
  5. FOSCARBIDOPA\FOSLEVODOPA [Suspect]
     Active Substance: FOSCARBIDOPA\FOSLEVODOPA
     Dosage: (SD: 0.30 ML), CRN: 0.18 ML/H, CR: 0.27 ML/H, CRH: 0.29 ML/H, ED: 0.10
     Route: 058
  6. FOSCARBIDOPA\FOSLEVODOPA [Suspect]
     Active Substance: FOSCARBIDOPA\FOSLEVODOPA
     Dosage: (SD: 0.80 ML), CRN: 0.15 ML/H, CR: 0.20 ML/H, CRH: 0.24 ML/H, ED: 0.10 ML
     Route: 058

REACTIONS (11)
  - Movement disorder [Not Recovered/Not Resolved]
  - On and off phenomenon [Recovering/Resolving]
  - Restlessness [Recovering/Resolving]
  - Fall [Recovered/Resolved]
  - Tremor [Not Recovered/Not Resolved]
  - Dyskinesia [Recovering/Resolving]
  - Myalgia [Not Recovered/Not Resolved]
  - Hyperkinesia [Recovering/Resolving]
  - Asthenia [Not Recovered/Not Resolved]
  - Gait disturbance [Not Recovered/Not Resolved]
  - Fall [Recovered/Resolved]

NARRATIVE: CASE EVENT DATE: 20241114
